FAERS Safety Report 7395636-2 (Version None)
Quarter: 2011Q2

REPORT INFORMATION
  Report Type: 
  Country: None (occurrence: None)
  Receive Date: 20110405
  Receipt Date: 20110331
  Transmission Date: 20111010
  Serious: Yes (Other)
  Sender: FDA-Public Use
  Company Number: CHPA2011US04752

PATIENT
  Sex: Female

DRUGS (1)
  1. EXCEDRIN UNKNOWN [Suspect]
     Indication: MIGRAINE
     Dosage: UNK, UNK
     Dates: start: 20000101

REACTIONS (1)
  - DRUG DEPENDENCE [None]
